FAERS Safety Report 7280409-1 (Version None)
Quarter: 2011Q1

REPORT INFORMATION
  Report Type: 
  Country: None (occurrence: None)
  Receive Date: 20110208
  Receipt Date: 20110201
  Transmission Date: 20110831
  Serious: Yes (Hospitalization)
  Sender: FDA-Public Use
  Company Number: FR-PFIZER INC-2011022585

PATIENT
  Age: 72 Year
  Sex: Female

DRUGS (2)
  1. RIFAMPICIN [Suspect]
     Dosage: 600 MG, 2X/DAY
     Route: 048
     Dates: start: 20101126, end: 20101216
  2. DALACINE [Suspect]
     Dosage: 600 MG, 3X/DAY
     Route: 048
     Dates: start: 20101126, end: 20101216

REACTIONS (1)
  - VASCULAR PURPURA [None]
